FAERS Safety Report 13579538 (Version 4)
Quarter: 2017Q2

REPORT INFORMATION
  Report Type: Spontaneous
  Country: CH (occurrence: CH)
  Receive Date: 20170525
  Receipt Date: 20170616
  Transmission Date: 20170830
  Serious: Yes (Death, Hospitalization, Other)
  Sender: FDA-Public Use
  Company Number: CH-BRISTOL-MYERS SQUIBB COMPANY-BMS-2017-045358

PATIENT
  Age: 73 Year
  Sex: Male
  Weight: 62.9 kg

DRUGS (9)
  1. BECOZYM                            /00228301/ [Concomitant]
     Active Substance: CALCIUM PANTOTHENATE\NIACINAMIDE\PYRIDOXINE HYDROCHLORIDE\RIBOFLAVIN\THIAMINE MONONITRATE
     Indication: PRODUCT USED FOR UNKNOWN INDICATION
     Route: 048
  2. BILOL [Concomitant]
     Active Substance: BISOPROLOL
     Indication: PRODUCT USED FOR UNKNOWN INDICATION
     Dosage: 3.75 MG, UNK
     Route: 048
  3. PANTOPRAZOLE [Suspect]
     Active Substance: PANTOPRAZOLE
     Indication: PRODUCT USED FOR UNKNOWN INDICATION
     Dosage: 40 MG, UNK
     Route: 065
  4. ACIDUM FOLICUM STREULI [Concomitant]
     Active Substance: FOLIC ACID
     Indication: PRODUCT USED FOR UNKNOWN INDICATION
     Dosage: 5 MG, QWK
     Route: 048
  5. METHOTREXATE. [Suspect]
     Active Substance: METHOTREXATE
     Indication: RHEUMATIC FEVER
     Dosage: 10 MG, UNK
     Route: 048
  6. ZESTRIL [Concomitant]
     Active Substance: LISINOPRIL
     Indication: PRODUCT USED FOR UNKNOWN INDICATION
     Route: 048
  7. ELIQUIS [Suspect]
     Active Substance: APIXABAN
     Indication: CEREBROVASCULAR ACCIDENT PROPHYLAXIS
     Dosage: 2.5 MG, BID
     Route: 048
     Dates: start: 20170207
  8. PIROXICAM. [Suspect]
     Active Substance: PIROXICAM
     Indication: PRODUCT USED FOR UNKNOWN INDICATION
     Dosage: 20 MG, PRN
     Route: 065
  9. KEPPRA [Suspect]
     Active Substance: LEVETIRACETAM
     Indication: PRODUCT USED FOR UNKNOWN INDICATION
     Dosage: 500 MG, BID
     Route: 048

REACTIONS (9)
  - Pancytopenia [Fatal]
  - Febrile neutropenia [Unknown]
  - Pneumonia aspiration [Unknown]
  - Oral herpes [Unknown]
  - Multiple organ dysfunction syndrome [Fatal]
  - Rash generalised [Unknown]
  - Drug interaction [Unknown]
  - Renal impairment [Unknown]
  - Cardiac failure [Fatal]

NARRATIVE: CASE EVENT DATE: 201704
